FAERS Safety Report 8565268 (Version 3)
Quarter: 2012Q4

REPORT INFORMATION
  Report Type: 
  Country: US (occurrence: US)
  Receive Date: 20120516
  Receipt Date: 20121124
  Transmission Date: 20130627
  Serious: Yes (Hospitalization)
  Sender: FDA-Public Use
  Company Number: US-BAYER-2012-047271

PATIENT
  Age: 32 Year
  Sex: Female
  Weight: 72.56 kg

DRUGS (19)
  1. YASMIN [Suspect]
     Indication: CONTRACEPTION
     Dosage: UNK
     Dates: start: 20080818, end: 20100117
  2. YASMIN [Suspect]
     Indication: PREMENSTRUAL SYNDROME
  3. OCELLA [Suspect]
     Indication: CONTRACEPTION
     Dosage: UNK
     Dates: start: 20080818, end: 20100117
  4. OCELLA [Suspect]
     Indication: PREMENSTRUAL SYNDROME
  5. YAZ [Suspect]
     Dosage: UNK
     Dates: start: 20080818, end: 20100117
  6. RITALIN [Concomitant]
     Indication: ATTENTION DEFICIT DISORDER
     Dosage: 10 mg, TID
     Route: 048
     Dates: start: 2007
  7. CELEXA [Concomitant]
     Dosage: 40 mg, QD
     Route: 048
  8. VITAMIN C [Concomitant]
  9. MIDODRINE [Concomitant]
     Dosage: 2.5 mg, BID
     Route: 048
  10. KLONOPIN [Concomitant]
     Dosage: 1 mg, QD
     Route: 048
  11. PHENOBARBITAL [Concomitant]
     Dosage: 15 mg, HS
     Dates: start: 2007, end: 2011
  12. FLORINEF [Concomitant]
     Dosage: 0.05 mg, BID
     Route: 048
  13. LORTAB [Concomitant]
  14. MORPHINE [Concomitant]
  15. VICODIN [Concomitant]
  16. BETA BLOCKING AGENTS [Concomitant]
     Dosage: UNK
     Dates: start: 2007, end: 2011
  17. IBUPROFEN [Concomitant]
  18. TYLENOL [Concomitant]
  19. CELEBREX [Concomitant]

REACTIONS (3)
  - Pulmonary embolism [None]
  - Injury [None]
  - Pulmonary infarction [None]
